FAERS Safety Report 16495564 (Version 2)
Quarter: 2019Q3

REPORT INFORMATION
  Report Type: Spontaneous
  Country: US (occurrence: US)
  Receive Date: 20190628
  Receipt Date: 20190809
  Transmission Date: 20191004
  Serious: No
  Sender: FDA-Public Use
  Company Number: US-PFIZER INC-2019265429

PATIENT
  Age: 82 Year
  Sex: Male
  Weight: 79.37 kg

DRUGS (2)
  1. METOPROLOL TARTRATE. [Suspect]
     Active Substance: METOPROLOL TARTRATE
     Indication: CARDIAC DISORDER
     Dosage: 25 MG, 2X/DAY
  2. METOPROLOL TARTRATE. [Suspect]
     Active Substance: METOPROLOL TARTRATE
     Indication: CARDIOMYOPATHY
     Dosage: 10 MG, 2X/DAY

REACTIONS (1)
  - Drug ineffective [Unknown]
